FAERS Safety Report 9531748 (Version 1)
Quarter: 2013Q3

REPORT INFORMATION
  Report Type: Spontaneous
  Country: PT (occurrence: None)
  Receive Date: 20130916
  Receipt Date: 20130916
  Transmission Date: 20140515
  Serious: Yes (Hospitalization)
  Sender: FDA-Public Use
  Company Number: 2013090009

PATIENT
  Age: 19 Year
  Sex: Male

DRUGS (2)
  1. MESALAMINE [Suspect]
     Indication: CROHN^S DISEASE
     Dosage: 3000 MG (1500 MG, 2 IN 1 D)
  2. BUDESONIDE (BUDESONIDE) [Concomitant]

REACTIONS (4)
  - Myocarditis [None]
  - Left ventricular dysfunction [None]
  - Myocardial fibrosis [None]
  - Hypersensitivity [None]
